FAERS Safety Report 23257971 (Version 1)
Quarter: 2023Q4

REPORT INFORMATION
  Report Type: Spontaneous
  Country: US (occurrence: US)
  Receive Date: 20231204
  Receipt Date: 20231204
  Transmission Date: 20240110
  Serious: No
  Sender: FDA-Public Use
  Company Number: US-OPELLA-2023OHG015173

PATIENT

DRUGS (1)
  1. ICY HOT MEDICATED NO MESS APPLICATOR [Suspect]
     Active Substance: MENTHOL
     Indication: Pain
     Route: 065
     Dates: start: 2023

REACTIONS (4)
  - Burns first degree [Unknown]
  - Rash macular [Unknown]
  - Pain of skin [Unknown]
  - Swelling [Unknown]

NARRATIVE: CASE EVENT DATE: 20231106
